FAERS Safety Report 7399159-6 (Version None)
Quarter: 2011Q2

REPORT INFORMATION
  Report Type: 
  Country: None (occurrence: None)
  Receive Date: 20110407
  Receipt Date: 20110330
  Transmission Date: 20111010
  Serious: No
  Sender: FDA-Public Use
  Company Number: US-PFIZER INC-2010040390

PATIENT
  Sex: Female

DRUGS (3)
  1. EFFEXOR XR [Suspect]
     Dosage: UNK
  2. ZOLOFT [Suspect]
     Dosage: 50 MG, UNK
     Dates: start: 19920101, end: 19950101
  3. EFFEXOR [Suspect]
     Dosage: UNK

REACTIONS (2)
  - HEADACHE [None]
  - DIZZINESS [None]
